FAERS Safety Report 18350517 (Version 2)
Quarter: 2020Q4

REPORT INFORMATION
  Report Type: Report from Study
  Country: BE (occurrence: BE)
  Receive Date: 20201006
  Receipt Date: 20201013
  Transmission Date: 20210114
  Serious: Yes (Hospitalization)
  Sender: FDA-Public Use
  Company Number: BE-IPSEN BIOPHARMACEUTICALS, INC.-2020-18442

PATIENT
  Age: 67 Year
  Sex: Female

DRUGS (2)
  1. SOMATULINE AUTOGEL [Suspect]
     Active Substance: LANREOTIDE ACETATE
     Indication: DIARRHOEA
     Route: 058
     Dates: start: 20200513
  2. IRON [Concomitant]
     Active Substance: IRON

REACTIONS (2)
  - Dehydration [Unknown]
  - Diarrhoea [Recovered/Resolved]

NARRATIVE: CASE EVENT DATE: 202009
